FAERS Safety Report 15906862 (Version 1)
Quarter: 2019Q1

REPORT INFORMATION
  Report Type: Spontaneous
  Country: US (occurrence: US)
  Receive Date: 20190204
  Receipt Date: 20190204
  Transmission Date: 20190417
  Serious: No
  Sender: FDA-Public Use
  Company Number: US-PFIZER INC-2018211646

PATIENT
  Age: 87 Year
  Sex: Male

DRUGS (5)
  1. AMLODIPINE [Concomitant]
     Active Substance: AMLODIPINE BESYLATE
     Indication: CARDIAC DISORDER
     Dosage: UNK
     Route: 065
  2. LORAZEPAM. [Concomitant]
     Active Substance: LORAZEPAM
     Indication: CARDIAC DISORDER
     Dosage: UNK
     Route: 065
  3. METOPROLOL TARTRATE. [Concomitant]
     Active Substance: METOPROLOL TARTRATE
     Indication: CARDIAC DISORDER
     Dosage: UNK
     Route: 065
  4. LYRICA [Suspect]
     Active Substance: PREGABALIN
     Dosage: 75 MG, 2X/DAY
     Route: 065
  5. ELIQUIS [Suspect]
     Active Substance: APIXABAN
     Indication: CEREBROVASCULAR ACCIDENT PROPHYLAXIS
     Dosage: 5 MG, BID
     Route: 048
     Dates: start: 2013

REACTIONS (4)
  - Neuralgia [Unknown]
  - Underdose [Unknown]
  - Insomnia [Unknown]
  - Wrong technique in product usage process [Unknown]
